FAERS Safety Report 10170464 (Version 1)
Quarter: 2014Q2

REPORT INFORMATION
  Report Type: Spontaneous
  Country: US (occurrence: US)
  Receive Date: 20140513
  Receipt Date: 20140513
  Transmission Date: 20141212
  Serious: Yes (Other)
  Sender: FDA-Public Use
  Company Number: US-PFIZER INC-2014128510

PATIENT
  Age: 72 Year
  Sex: Male

DRUGS (1)
  1. TORISEL [Suspect]
     Dosage: UNK

REACTIONS (1)
  - Angioedema [Unknown]
